FAERS Safety Report 23446166 (Version 1)
Quarter: 2024Q1

REPORT INFORMATION
  Report Type: Spontaneous
  Country: SG (occurrence: SG)
  Receive Date: 20240126
  Receipt Date: 20240126
  Transmission Date: 20240410
  Serious: Yes (Other)
  Sender: FDA-Public Use
  Company Number: SG-BAYER-2024A013163

PATIENT

DRUGS (2)
  1. EYLEA [Suspect]
     Active Substance: AFLIBERCEPT
     Indication: Haematocrit
     Dosage: 2 MG, STRENGTH: 40MG/ML
  2. FARICIMAB [Concomitant]
     Active Substance: FARICIMAB
     Indication: Product used for unknown indication

REACTIONS (1)
  - Drug ineffective for unapproved indication [Recovering/Resolving]
